FAERS Safety Report 16323246 (Version 1)
Quarter: 2019Q2

REPORT INFORMATION
  Report Type: Spontaneous
  Country: US (occurrence: US)
  Receive Date: 20190517
  Receipt Date: 20190517
  Transmission Date: 20190711
  Serious: Yes (Other)
  Sender: FDA-Public Use
  Company Number: US-CIPLA LTD.-2019US03629

PATIENT

DRUGS (6)
  1. LEUCOVORIN                         /00566701/ [Suspect]
     Active Substance: LEUCOVORIN
     Indication: PANCREATIC CARCINOMA METASTATIC
     Dosage: 400 MILLIGRAM/SQ. METER, UNK
  2. IRINOTECAN [Suspect]
     Active Substance: IRINOTECAN
     Indication: PANCREATIC CARCINOMA METASTATIC
     Dosage: 180 MILLIGRAM/SQ. METER, INTRAVENOUS INFUSION OVER 90 MIN
  3. OXALIPLATIN. [Suspect]
     Active Substance: OXALIPLATIN
     Indication: PANCREATIC CARCINOMA METASTATIC
     Dosage: 85 MILLIGRAM/SQ. METER, OVER 2 HOURS
     Route: 065
  4. 5-FLUOROURACIL                     /00098801/ [Suspect]
     Active Substance: FLUOROURACIL
     Indication: PANCREATIC CARCINOMA METASTATIC
     Dosage: 400 MILLIGRAM/SQ. METER, INTRAVENOUS BOLUS OVER 15 MINS
     Route: 040
  5. IRINOTECAN [Suspect]
     Active Substance: IRINOTECAN
     Dosage: 150 MILLIGRAM/SQ. METER, INTRAVENOUS INFUSION OVER 90 MIN
  6. 5-FLUOROURACIL                     /00098801/ [Suspect]
     Active Substance: FLUOROURACIL
     Dosage: 2400 MILLIGRAM/SQ. METER, OVER 46 H

REACTIONS (9)
  - Fatigue [Unknown]
  - Dysarthria [Recovered/Resolved]
  - Abdominal distension [Unknown]
  - Cholinergic syndrome [Unknown]
  - Paraesthesia oral [Unknown]
  - Diarrhoea [Unknown]
  - Asthenia [Unknown]
  - Neuropathy peripheral [Unknown]
  - Muscle spasms [Unknown]
